FAERS Safety Report 5877396-7 (Version None)
Quarter: 2008Q3

REPORT INFORMATION
  Report Type: 
  Country: None (occurrence: None)
  Receive Date: 20080909
  Receipt Date: 20080901
  Transmission Date: 20090109
  Serious: Yes (Other)
  Sender: FDA-Public Use
  Company Number: CHPA2008US14512

PATIENT
  Age: 21 Year
  Sex: Male
  Weight: 86.2 kg

DRUGS (1)
  1. NODOZ             (CAFFEINE) CAPLET [Suspect]
     Indication: SOMNOLENCE
     Dosage: 3200 MG, QD, ORAL
     Route: 048
     Dates: start: 20080831, end: 20080831

REACTIONS (7)
  - AGITATION [None]
  - HEADACHE [None]
  - HEART RATE INCREASED [None]
  - HYPOAESTHESIA [None]
  - INCORRECT DOSE ADMINISTERED [None]
  - SOMNOLENCE [None]
  - VOMITING [None]
